FAERS Safety Report 11776748 (Version 12)
Quarter: 2017Q1

REPORT INFORMATION
  Report Type: Report from Study
  Country: AT (occurrence: AT)
  Receive Date: 20151125
  Receipt Date: 20170329
  Transmission Date: 20170428
  Serious: Yes (Hospitalization, Other)
  Sender: FDA-Public Use
  Company Number: AT-INCYTE CORPORATION-2014IN003351

PATIENT
  Age: 81 Year
  Sex: Male
  Weight: 66.7 kg

DRUGS (102)
  1. JAKAVI [Suspect]
     Active Substance: RUXOLITINIB
     Indication: MYELOFIBROSIS
     Dosage: 20 MG, BID
     Route: 048
     Dates: start: 20131115, end: 20131217
  2. JAKAVI [Suspect]
     Active Substance: RUXOLITINIB
     Dosage: 15 MG, UNK
     Route: 048
     Dates: start: 20151115
  3. SINTROM [Concomitant]
     Active Substance: ACENOCOUMAROL
     Route: 065
  4. EBRANTIL [Concomitant]
     Active Substance: URAPIDIL
     Dosage: 1 DF, QD
     Route: 065
  5. AMLODIPIN//AMLODIPINE [Concomitant]
     Indication: PRODUCT USED FOR UNKNOWN INDICATION
     Dosage: UNKNOWN
     Route: 065
  6. XALATAN [Concomitant]
     Active Substance: LATANOPROST
     Route: 065
  7. XALATAN [Concomitant]
     Active Substance: LATANOPROST
     Route: 065
  8. PASSEDAN [Concomitant]
     Route: 065
  9. XALACOM [Concomitant]
     Active Substance: LATANOPROST\TIMOLOL MALEATE
     Indication: PRODUCT USED FOR UNKNOWN INDICATION
     Dosage: UNKNOWN
  10. XALACOM [Concomitant]
     Active Substance: LATANOPROST\TIMOLOL MALEATE
     Route: 065
  11. TORASEMID [Concomitant]
     Active Substance: TORSEMIDE
     Indication: PRODUCT USED FOR UNKNOWN INDICATION
     Dosage: 20 MG, QD (1-0-0)
     Route: 065
  12. BERODUAL [Concomitant]
     Active Substance: FENOTEROL HYDROBROMIDE\IPRATROPIUM BROMIDE
     Indication: PRODUCT USED FOR UNKNOWN INDICATION
     Dosage: UNK UNK, PRN
     Route: 065
  13. CURAM [Concomitant]
     Active Substance: AMOXICILLIN\CLAVULANATE POTASSIUM
     Indication: PRODUCT USED FOR UNKNOWN INDICATION
     Dosage: UNK
     Route: 065
     Dates: start: 20161127, end: 201612
  14. JAKAVI [Suspect]
     Active Substance: RUXOLITINIB
     Dosage: 5 MG, BID (2-0-2)
     Route: 048
     Dates: start: 20140618
  15. SINTROM [Concomitant]
     Active Substance: ACENOCOUMAROL
     Route: 065
  16. SINTROM [Concomitant]
     Active Substance: ACENOCOUMAROL
     Route: 065
  17. EBRANTIL [Concomitant]
     Active Substance: URAPIDIL
     Dosage: 1 DF, QD
     Route: 065
  18. EBRANTIL [Concomitant]
     Active Substance: URAPIDIL
     Dosage: 1 DF, QD
     Route: 065
  19. DILATREND [Concomitant]
     Active Substance: CARVEDILOL
     Dosage: 25 MG, BID
     Route: 065
  20. MEXALEN [Concomitant]
     Active Substance: ACETAMINOPHEN
  21. MEXALEN [Concomitant]
     Active Substance: ACETAMINOPHEN
  22. AMLODIPIN//AMLODIPINE [Concomitant]
     Dosage: 10 MG, QD
  23. PASSEDAN [Concomitant]
     Route: 065
  24. PASSEDAN [Concomitant]
     Route: 065
  25. XALACOM [Concomitant]
     Active Substance: LATANOPROST\TIMOLOL MALEATE
     Route: 065
  26. JAKAVI [Suspect]
     Active Substance: RUXOLITINIB
     Dosage: 20 MG, QD
     Route: 048
     Dates: start: 20131219, end: 201401
  27. JAKAVI [Suspect]
     Active Substance: RUXOLITINIB
     Dosage: 25 MG, UNK (10MG-0-15MG)
     Route: 048
  28. SINTROM [Concomitant]
     Active Substance: ACENOCOUMAROL
     Route: 065
  29. EBRANTIL [Concomitant]
     Active Substance: URAPIDIL
     Dosage: 1 DF, QD
     Route: 065
  30. DILATREND [Concomitant]
     Active Substance: CARVEDILOL
     Indication: PRODUCT USED FOR UNKNOWN INDICATION
     Dosage: UNKNOWN
  31. DILATREND [Concomitant]
     Active Substance: CARVEDILOL
     Dosage: 25 MG, BID
     Route: 065
  32. DILATREND [Concomitant]
     Active Substance: CARVEDILOL
     Dosage: 25 MG, BID (1-0-1)
     Route: 065
  33. MEXALEN [Concomitant]
     Active Substance: ACETAMINOPHEN
  34. XALATAN [Concomitant]
     Active Substance: LATANOPROST
     Route: 065
  35. NITROLINGUAL [Concomitant]
     Active Substance: NITROGLYCERIN
     Indication: PRODUCT USED FOR UNKNOWN INDICATION
     Route: 065
  36. AUGMENTIN [Concomitant]
     Active Substance: AMOXICILLIN\CLAVULANATE POTASSIUM
     Indication: PRODUCT USED FOR UNKNOWN INDICATION
     Dosage: UNK
     Route: 065
     Dates: start: 20161127, end: 201612
  37. JAKAVI [Suspect]
     Active Substance: RUXOLITINIB
     Dosage: 25 MG, UNK (10MG-0-15MG)
     Route: 048
  38. SINTROM [Concomitant]
     Active Substance: ACENOCOUMAROL
     Route: 065
  39. EBRANTIL [Concomitant]
     Active Substance: URAPIDIL
     Indication: PRODUCT USED FOR UNKNOWN INDICATION
     Dosage: 30 MG, UNK
  40. AMLODIPIN//AMLODIPINE [Concomitant]
     Dosage: 10 MG, QD
  41. AMLODIPIN//AMLODIPINE [Concomitant]
     Dosage: 10 MG, QD
  42. XALATAN [Concomitant]
     Active Substance: LATANOPROST
     Route: 065
  43. XALATAN [Concomitant]
     Active Substance: LATANOPROST
     Route: 065
  44. PASSEDAN [Concomitant]
     Route: 065
  45. PASSEDAN [Concomitant]
     Route: 065
  46. XALACOM [Concomitant]
     Active Substance: LATANOPROST\TIMOLOL MALEATE
     Route: 065
  47. XALACOM [Concomitant]
     Active Substance: LATANOPROST\TIMOLOL MALEATE
     Dosage: UNK UNK, QD (0-0-1)
     Route: 065
  48. INSPRA [Concomitant]
     Active Substance: EPLERENONE
     Indication: PRODUCT USED FOR UNKNOWN INDICATION
     Dosage: 25 MG, QD (0-1-0)
     Route: 065
  49. JAKAVI [Suspect]
     Active Substance: RUXOLITINIB
     Dosage: 20 MG, QD
     Route: 048
  50. JAKAVI [Suspect]
     Active Substance: RUXOLITINIB
     Dosage: 10 MG, QD
     Route: 048
  51. SINTROM [Concomitant]
     Active Substance: ACENOCOUMAROL
     Indication: PRODUCT USED FOR UNKNOWN INDICATION
     Dosage: UNKNOWN
  52. EBRANTIL [Concomitant]
     Active Substance: URAPIDIL
     Dosage: 1 DF, QD
     Route: 065
  53. EBRANTIL [Concomitant]
     Active Substance: URAPIDIL
     Dosage: 1 DF, QD (UNTIL 10.2016 OR 11.2016)
     Route: 065
  54. DILATREND [Concomitant]
     Active Substance: CARVEDILOL
     Dosage: 25 MG, BID
     Route: 065
  55. MEXALEN [Concomitant]
     Active Substance: ACETAMINOPHEN
  56. AMLODIPIN//AMLODIPINE [Concomitant]
     Dosage: 10 MG, QD
  57. AMLODIPIN//AMLODIPINE [Concomitant]
     Dosage: 10 MG, QD
  58. XALATAN [Concomitant]
     Active Substance: LATANOPROST
     Route: 065
  59. XARELTO [Concomitant]
     Active Substance: RIVAROXABAN
     Indication: PRODUCT USED FOR UNKNOWN INDICATION
     Dosage: 15 MG, QD (1-0-0)
     Route: 065
  60. SINTROM [Concomitant]
     Active Substance: ACENOCOUMAROL
     Route: 065
  61. SINTROM [Concomitant]
     Active Substance: ACENOCOUMAROL
     Route: 065
  62. EBRANTIL [Concomitant]
     Active Substance: URAPIDIL
     Dosage: 1 DF, QD
     Route: 065
  63. EBRANTIL [Concomitant]
     Active Substance: URAPIDIL
     Dosage: UNK
  64. EBRANTIL [Concomitant]
     Active Substance: URAPIDIL
     Dosage: 1 DF, QD
     Route: 065
  65. DILATREND [Concomitant]
     Active Substance: CARVEDILOL
     Dosage: 25 MG, BID
     Route: 065
  66. DILATREND [Concomitant]
     Active Substance: CARVEDILOL
     Dosage: 25 MG, BID
     Route: 065
  67. MEXALEN [Concomitant]
     Active Substance: ACETAMINOPHEN
     Indication: PRODUCT USED FOR UNKNOWN INDICATION
     Dosage: 500 MG, PRN (MAX QID)
     Route: 065
  68. AMLODIPIN//AMLODIPINE [Concomitant]
     Dosage: 10 MG, QD
  69. AMLODIPIN//AMLODIPINE [Concomitant]
     Dosage: 10 MG, QD (0-0-1)
  70. XALATAN [Concomitant]
     Active Substance: LATANOPROST
     Route: 065
  71. PASSEDAN [Concomitant]
     Indication: PRODUCT USED FOR UNKNOWN INDICATION
     Dosage: UNKNOWN
  72. PASSEDAN [Concomitant]
     Route: 065
  73. XALACOM [Concomitant]
     Active Substance: LATANOPROST\TIMOLOL MALEATE
     Route: 065
  74. XALACOM [Concomitant]
     Active Substance: LATANOPROST\TIMOLOL MALEATE
     Route: 065
  75. MUCOBENE [Concomitant]
     Indication: PRODUCT USED FOR UNKNOWN INDICATION
     Dosage: 600 MG, PRN
     Route: 065
  76. FOSTER [Concomitant]
     Active Substance: BECLOMETHASONE\FORMOTEROL
     Indication: PRODUCT USED FOR UNKNOWN INDICATION
     Dosage: UNK UNK, BID (2-0-2)
     Route: 065
  77. JAKAVI [Suspect]
     Active Substance: RUXOLITINIB
     Dosage: 10 MG, (5-0-5)
     Route: 048
  78. SINTROM [Concomitant]
     Active Substance: ACENOCOUMAROL
     Route: 065
  79. EBRANTIL [Concomitant]
     Active Substance: URAPIDIL
     Dosage: 1 DF, QD
     Route: 065
  80. EBRANTIL [Concomitant]
     Active Substance: URAPIDIL
     Dosage: 1 DF, QD
     Route: 065
  81. DILATREND [Concomitant]
     Active Substance: CARVEDILOL
     Dosage: 25 MG, BID
     Route: 065
  82. DILATREND [Concomitant]
     Active Substance: CARVEDILOL
     Dosage: 25 MG, BID
     Route: 065
  83. MEXALEN [Concomitant]
     Active Substance: ACETAMINOPHEN
  84. AMLODIPIN//AMLODIPINE [Concomitant]
     Dosage: 10 MG, QD
  85. AMLODIPIN//AMLODIPINE [Concomitant]
     Dosage: 10 MG, QD
  86. XALATAN [Concomitant]
     Active Substance: LATANOPROST
     Indication: PRODUCT USED FOR UNKNOWN INDICATION
     Dosage: UNKNOWN
  87. XALATAN [Concomitant]
     Active Substance: LATANOPROST
     Route: 065
  88. XALATAN [Concomitant]
     Active Substance: LATANOPROST
     Route: 065
  89. PASSEDAN [Concomitant]
     Route: 065
  90. PASSEDAN [Concomitant]
     Route: 065
  91. XALACOM [Concomitant]
     Active Substance: LATANOPROST\TIMOLOL MALEATE
     Route: 065
  92. XALACOM [Concomitant]
     Active Substance: LATANOPROST\TIMOLOL MALEATE
     Route: 065
  93. SPIRIVA [Concomitant]
     Active Substance: TIOTROPIUM BROMIDE MONOHYDRATE
     Indication: PRODUCT USED FOR UNKNOWN INDICATION
     Dosage: 18 UG, QD (1-0-0)
     Route: 065
  94. JAKAVI [Suspect]
     Active Substance: RUXOLITINIB
     Dosage: 5 MG, UNK
     Route: 048
     Dates: start: 201401
  95. SINTROM [Concomitant]
     Active Substance: ACENOCOUMAROL
     Route: 065
  96. DILATREND [Concomitant]
     Active Substance: CARVEDILOL
     Dosage: 25 MG, BID
     Route: 065
  97. DILATREND [Concomitant]
     Active Substance: CARVEDILOL
     Dosage: 25 MG, BID
     Route: 065
  98. AMLODIPIN//AMLODIPINE [Concomitant]
     Dosage: 10 MG, QD
  99. PASSEDAN [Concomitant]
     Route: 065
  100. XALACOM [Concomitant]
     Active Substance: LATANOPROST\TIMOLOL MALEATE
     Route: 065
  101. ALLOPURINOL. [Concomitant]
     Active Substance: ALLOPURINOL
     Indication: PRODUCT USED FOR UNKNOWN INDICATION
     Dosage: 300 MG, QD (1-0-0)
     Route: 065
  102. THROMBOREDUCTIN [Concomitant]
     Indication: MYELOPROLIFERATIVE NEOPLASM
     Route: 065
     Dates: start: 20130808, end: 20131115

REACTIONS (22)
  - Anaemia [Recovered/Resolved]
  - Basal cell carcinoma [Recovered/Resolved]
  - Dysplastic naevus [Unknown]
  - Blood lactate dehydrogenase increased [Unknown]
  - Cardiac failure [Recovered/Resolved]
  - Pneumonia [Recovered/Resolved]
  - Atrial fibrillation [Recovered/Resolved]
  - Gout [Recovered/Resolved]
  - Mitral valve incompetence [Unknown]
  - Tricuspid valve incompetence [Unknown]
  - Cardiac failure [Recovered/Resolved]
  - Respiratory tract infection [Recovered/Resolved]
  - Atrial fibrillation [Recovered/Resolved]
  - Blood creatinine increased [Unknown]
  - Dehydration [Unknown]
  - Dyspnoea [Recovered/Resolved]
  - Pneumonia [Recovered/Resolved]
  - Gout [Recovered/Resolved]
  - Bronchial disorder [Unknown]
  - Anaemia [Recovered/Resolved]
  - Second primary malignancy [Recovered/Resolved]
  - Chronic obstructive pulmonary disease [Not Recovered/Not Resolved]

NARRATIVE: CASE EVENT DATE: 20140726
